FAERS Safety Report 6527390-8 (Version None)
Quarter: 2010Q1

REPORT INFORMATION
  Report Type: 
  Country: None (occurrence: None)
  Receive Date: 20100105
  Receipt Date: 20091223
  Transmission Date: 20100710
  Serious: Yes (Death, Other)
  Sender: FDA-Public Use
  Company Number: BR-GENENTECH-296258

PATIENT
  Sex: Male

DRUGS (1)
  1. RITUXIMAB [Suspect]
     Indication: WEGENER'S GRANULOMATOSIS
     Dosage: UNK
     Route: 042
     Dates: start: 20090715, end: 20090731

REACTIONS (2)
  - DEATH [None]
  - PULMONARY HAEMORRHAGE [None]
